FAERS Safety Report 15377397 (Version 1)
Quarter: 2018Q3

REPORT INFORMATION
  Report Type: Spontaneous
  Country: US (occurrence: US)
  Receive Date: 20180906
  Receipt Date: 20180906
  Transmission Date: 20181010
  Serious: Yes (Hospitalization)
  Sender: FDA-Public Use
  Company Number: None

PATIENT
  Age: 58 Year
  Sex: Male

DRUGS (1)
  1. GENVOYA [Suspect]
     Active Substance: COBICISTAT\ELVITEGRAVIR\EMTRICITABINE\TENOFOVIR ALAFENAMIDE FUMARATE
     Indication: HIV INFECTION
     Dates: start: 20161123, end: 20180907

REACTIONS (6)
  - Hallucination [None]
  - Toxoplasmosis [None]
  - Candida infection [None]
  - Purpura [None]
  - Therapy cessation [None]
  - Henoch-Schonlein purpura [None]

NARRATIVE: CASE EVENT DATE: 20180906
